FAERS Safety Report 6543395-5 (Version None)
Quarter: 2010Q1

REPORT INFORMATION
  Report Type: 
  Country: None (occurrence: None)
  Receive Date: 20100107
  Receipt Date: 20090911
  Transmission Date: 20100710
  Serious: No
  Sender: FDA-Public Use
  Company Number: 2009-00606

PATIENT

DRUGS (1)
  1. ALL ZICAM PRODUCTS [Suspect]

REACTIONS (1)
  - ANOSMIA [None]
